FAERS Safety Report 25160333 (Version 1)
Quarter: 2025Q2

REPORT INFORMATION
  Report Type: Spontaneous
  Country: FR (occurrence: FR)
  Receive Date: 20250404
  Receipt Date: 20250404
  Transmission Date: 20250716
  Serious: Yes (Death, Hospitalization, Other)
  Sender: PFIZER
  Company Number: None

PATIENT
  Age: 36 Year
  Sex: Female
  Weight: 99 kg

DRUGS (16)
  1. CYTARABINE [Suspect]
     Active Substance: CYTARABINE
     Indication: Hodgkin^s disease
     Dosage: 800 MG, 1X/DAY
     Route: 042
     Dates: start: 20151211, end: 20151214
  2. CYTARABINE [Suspect]
     Active Substance: CYTARABINE
     Route: 042
     Dates: start: 201512, end: 201512
  3. THIOTEPA [Suspect]
     Active Substance: THIOTEPA
     Indication: Hodgkin^s disease
     Dosage: 790 MG (8 MG/KG), 1X/DAY
     Route: 042
     Dates: start: 20151210, end: 20151210
  4. ETOPOSIDE [Suspect]
     Active Substance: ETOPOSIDE
     Indication: Hodgkin^s disease
     Dosage: 400 MG, 1X/DAY
     Route: 042
     Dates: start: 20151211, end: 20151214
  5. ETOPOSIDE [Suspect]
     Active Substance: ETOPOSIDE
     Route: 042
     Dates: start: 201512, end: 201512
  6. ONDANSETRON [Concomitant]
     Active Substance: ONDANSETRON
     Indication: Prophylaxis
     Dosage: 8 MG, 1X/DAY
     Route: 042
     Dates: start: 20151210, end: 20151214
  7. EMEND [Concomitant]
     Active Substance: APREPITANT
     Indication: Prophylaxis
     Dosage: 1 DF, 1X/DAY
     Route: 048
     Dates: start: 20151211, end: 20151217
  8. METHYLPREDNISOLONE SODIUM SUCCINATE [Concomitant]
     Active Substance: METHYLPREDNISOLONE SODIUM SUCCINATE
     Indication: Prophylaxis
     Route: 042
     Dates: start: 20151214, end: 20151214
  9. PIPERACILLIN SODIUM\TAZOBACTAM SODIUM [Concomitant]
     Active Substance: PIPERACILLIN SODIUM\TAZOBACTAM SODIUM
     Indication: Streptococcal bacteraemia
     Route: 042
     Dates: start: 20151210, end: 20151215
  10. VANCOMYCIN HYDROCHLORIDE [Concomitant]
     Active Substance: VANCOMYCIN HYDROCHLORIDE
     Indication: Streptococcal bacteraemia
     Route: 042
     Dates: start: 20151210, end: 20151215
  11. LAMICTAL [Concomitant]
     Active Substance: LAMOTRIGINE
     Indication: Epilepsy
     Route: 048
     Dates: end: 201512
  12. FYCOMPA [Concomitant]
     Active Substance: PERAMPANEL
     Route: 048
     Dates: end: 201512
  13. RIVOTRIL [Concomitant]
     Active Substance: CLONAZEPAM
     Indication: Epilepsy
     Route: 048
     Dates: end: 201512
  14. PERFALGAN [Concomitant]
     Active Substance: ACETAMINOPHEN
     Dosage: 4 G, 1X/DAY
     Route: 042
     Dates: start: 20151209
  15. HEPARIN SODIUM [Concomitant]
     Active Substance: HEPARIN SODIUM
     Route: 058
     Dates: start: 20151210
  16. MELPHALAN [Concomitant]
     Active Substance: MELPHALAN

REACTIONS (5)
  - Congenital aplasia [Fatal]
  - Stevens-Johnson syndrome [Fatal]
  - Generalised oedema [Fatal]
  - Toxic epidermal necrolysis [Unknown]
  - Off label use [Unknown]

NARRATIVE: CASE EVENT DATE: 20151201
